FAERS Safety Report 5952049-5 (Version None)
Quarter: 2008Q4

REPORT INFORMATION
  Report Type: 
  Country: None (occurrence: None)
  Receive Date: 20081113
  Receipt Date: 20080206
  Transmission Date: 20090506
  Serious: No
  Sender: FDA-Public Use
  Company Number: A0705576A

PATIENT
  Age: 78 Year
  Sex: Male

DRUGS (8)
  1. COREG [Suspect]
     Route: 048
     Dates: start: 20061101, end: 20070201
  2. COREG CR [Suspect]
     Dosage: 10MG PER DAY
     Route: 048
     Dates: start: 20080127
  3. FUROSEMIDE [Concomitant]
  4. LISINOPRIL [Concomitant]
  5. COUMADIN [Concomitant]
  6. LEVOTHYROXINE SODIUM [Concomitant]
  7. DILTIAZEM HCL [Concomitant]
  8. SPIRIVA [Concomitant]

REACTIONS (2)
  - DRUG INEFFECTIVE [None]
  - DYSPNOEA [None]
